FAERS Safety Report 6108484-8 (Version None)
Quarter: 2009Q1

REPORT INFORMATION
  Report Type: 
  Country: None (occurrence: None)
  Receive Date: 20090309
  Receipt Date: 20090305
  Transmission Date: 20090719
  Serious: Yes (Hospitalization)
  Sender: FDA-Public Use
  Company Number: US-B.I. PHARMACEUTICALS,INC./RIDGEFIELD-2008-BP-18279BP

PATIENT
  Sex: Male
  Weight: 100 kg

DRUGS (3)
  1. ZANTAC [Suspect]
     Indication: DYSPEPSIA
     Dosage: 150MG
     Route: 048
     Dates: start: 20081130, end: 20081201
  2. ZANTAC [Suspect]
     Indication: GASTROOESOPHAGEAL REFLUX DISEASE
  3. PRILOSEC OTC [Concomitant]
     Indication: GASTRIC DISORDER
     Route: 048

REACTIONS (6)
  - ABDOMINAL DISCOMFORT [None]
  - ANAEMIA [None]
  - DIZZINESS [None]
  - DYSPNOEA [None]
  - FAECES DISCOLOURED [None]
  - NAUSEA [None]
